FAERS Safety Report 5937187-5 (Version None)
Quarter: 2008Q4

REPORT INFORMATION
  Report Type: 
  Country: None (occurrence: None)
  Receive Date: 20081031
  Receipt Date: 20081023
  Transmission Date: 20090506
  Serious: Yes (Hospitalization)
  Sender: FDA-Public Use
  Company Number: US-ROCHE-593278

PATIENT
  Sex: Female

DRUGS (3)
  1. VESANOID [Suspect]
     Dosage: INDICATION: APL
     Route: 065
     Dates: start: 20081016
  2. RHOGAM [Suspect]
     Indication: DRUG USE FOR UNKNOWN INDICATION
     Route: 065
  3. CRYOPRECIPITATE TRANSFUSION [Concomitant]

REACTIONS (1)
  - HAEMATOCRIT DECREASED [None]
